FAERS Safety Report 8359518-1 (Version None)
Quarter: 2012Q2

REPORT INFORMATION
  Report Type: 
  Country: None (occurrence: None)
  Receive Date: 20120514
  Receipt Date: 20120514
  Transmission Date: 20120825
  Serious: No
  Sender: FDA-Public Use
  Company Number: None

PATIENT
  Age: 27 Year
  Sex: Male
  Weight: 78.5 kg

DRUGS (1)
  1. TRAZODONE HCL [Suspect]
     Indication: SOMNOLENCE
     Dosage: MG PO
     Route: 048
     Dates: start: 20110225, end: 20110321

REACTIONS (1)
  - PRIAPISM [None]
